FAERS Safety Report 4783294-2 (Version None)
Quarter: 2005Q3

REPORT INFORMATION
  Report Type: 
  Country: None (occurrence: None)
  Receive Date: 20050929
  Receipt Date: 20050323
  Transmission Date: 20060218
  Serious: Yes (Hospitalization, Disabling, Other)
  Sender: FDA-Public Use
  Company Number: US-MERCK-0503USA04137

PATIENT
  Age: 72 Year
  Sex: Male
  Weight: 71 kg

DRUGS (1)
  1. VIOXX [Suspect]
     Indication: ARTHRITIS
     Route: 048
     Dates: start: 20030901, end: 20040701

REACTIONS (20)
  - ABDOMINAL DISCOMFORT [None]
  - AGEUSIA [None]
  - ASTHENIA [None]
  - ATRIAL BIGEMINY [None]
  - CAROTID BRUIT [None]
  - CEREBROVASCULAR ACCIDENT [None]
  - DYSPNOEA [None]
  - GALLBLADDER DISORDER [None]
  - GRIP STRENGTH DECREASED [None]
  - HYPERTENSION [None]
  - HYPOAESTHESIA [None]
  - JAW DISORDER [None]
  - LUNG DISORDER [None]
  - NECK PAIN [None]
  - PAIN IN EXTREMITY [None]
  - PALPITATIONS [None]
  - POLYTRAUMATISM [None]
  - SENSORY LOSS [None]
  - SPEECH DISORDER [None]
  - VENTRICULAR EXTRASYSTOLES [None]
